FAERS Safety Report 11516611 (Version 2)
Quarter: 2015Q3

REPORT INFORMATION
  Report Type: Spontaneous
  Country: EG (occurrence: EG)
  Receive Date: 20150917
  Receipt Date: 20150929
  Transmission Date: 20151125
  Serious: Yes (Hospitalization, Other)
  Sender: FDA-Public Use
  Company Number: EG-NOVOPROD-463276

PATIENT
  Age: 49 Year
  Sex: Male
  Weight: 60 kg

DRUGS (4)
  1. NOVOMIX FLEXPEN [Suspect]
     Active Substance: INSULIN ASPART
     Indication: DIABETES MELLITUS
     Dosage: 55 IU, QD (35IU/MORNING AND 20IU/NIGHT STARTED 5 MONTHS AGO)
     Route: 058
  2. SOVALDI [Concomitant]
     Active Substance: SOFOSBUVIR
     Indication: HEPATIC CIRRHOSIS
     Dosage: SINGLE
     Route: 048
     Dates: start: 201501
  3. URSOFALK [Concomitant]
     Active Substance: URSODIOL
     Indication: HEPATIC CIRRHOSIS
     Dosage: TID STARTED 2 YEARS AGO
     Route: 048
  4. SOVALDI [Concomitant]
     Active Substance: SOFOSBUVIR
     Indication: HEPATITIS C

REACTIONS (1)
  - Coma hepatic [Recovered/Resolved]

NARRATIVE: CASE EVENT DATE: 20150905
